FAERS Safety Report 20881735 (Version 2)
Quarter: 2022Q2

REPORT INFORMATION
  Report Type: Report from Study
  Country: CA (occurrence: CA)
  Receive Date: 20220527
  Receipt Date: 20220531
  Transmission Date: 20220720
  Serious: Yes (Hospitalization)
  Sender: FDA-Public Use
  Company Number: CA-JNJFOC-20220522882

PATIENT
  Age: 74 Year
  Sex: Male

DRUGS (1)
  1. TREMFYA [Suspect]
     Active Substance: GUSELKUMAB
     Indication: Product used for unknown indication
     Route: 065

REACTIONS (3)
  - Pneumonia [Unknown]
  - Fluid retention [Not Recovered/Not Resolved]
  - Limb injury [Unknown]

NARRATIVE: CASE EVENT DATE: 20220101
